FAERS Safety Report 6766748-9 (Version None)
Quarter: 2010Q2

REPORT INFORMATION
  Report Type: 
  Country: None (occurrence: None)
  Receive Date: 20100611
  Receipt Date: 20100505
  Transmission Date: 20101027
  Serious: Yes (Hospitalization, Other)
  Sender: FDA-Public Use
  Company Number: CN-PFIZER INC-2010058383

PATIENT
  Age: 98 Year
  Sex: Female

DRUGS (3)
  1. SERTRALINE HCL [Suspect]
  2. BUPRENORPHINE [Suspect]
     Indication: SPINAL COLUMN STENOSIS
  3. ACENOCOUMAROL [Concomitant]
     Indication: EMBOLISM

REACTIONS (1)
  - MYOCLONUS [None]
